FAERS Safety Report 6088492-6 (Version None)
Quarter: 2009Q1

REPORT INFORMATION
  Report Type: 
  Country: None (occurrence: None)
  Receive Date: 20090224
  Receipt Date: 20090212
  Transmission Date: 20090719
  Serious: Yes (Hospitalization, Other)
  Sender: FDA-Public Use
  Company Number: GB-JNJFOC-20081102431

PATIENT
  Sex: Female
  Weight: 55 kg

DRUGS (10)
  1. REMICADE [Suspect]
     Route: 042
  2. REMICADE [Suspect]
     Indication: RHEUMATOID ARTHRITIS
     Route: 042
  3. METHOTREXATE [Concomitant]
  4. PREDNISOLONE [Concomitant]
  5. ADCAL [Concomitant]
  6. FLUCONAZOLE [Concomitant]
  7. FOLIC ACID [Concomitant]
  8. GLICLAZIDE [Concomitant]
  9. LORAZEPAM [Concomitant]
  10. MORPHINE SULFATE [Concomitant]

REACTIONS (2)
  - RHEUMATOID ARTHRITIS [None]
  - SYSTEMIC LUPUS ERYTHEMATOSUS [None]
